FAERS Safety Report 24401526 (Version 1)
Quarter: 2024Q4

REPORT INFORMATION
  Report Type: Spontaneous
  Country: US (occurrence: US)
  Receive Date: 20241007
  Receipt Date: 20241007
  Transmission Date: 20250114
  Serious: No
  Sender: AMGEN
  Company Number: US-AMGEN-USASP2024196438

PATIENT
  Age: 58 Year

DRUGS (1)
  1. REPATHA [Suspect]
     Active Substance: EVOLOCUMAB
     Indication: Product used for unknown indication
     Dosage: 140 MILLIGRAM
     Route: 065
     Dates: start: 2022

REACTIONS (2)
  - Injection site pain [Unknown]
  - Device difficult to use [Unknown]

NARRATIVE: CASE EVENT DATE: 20241001
